FAERS Safety Report 13739182 (Version 2)
Quarter: 2018Q2

REPORT INFORMATION
  Report Type: Report from Study
  Country: US (occurrence: US)
  Receive Date: 20170710
  Receipt Date: 20180627
  Transmission Date: 20180711
  Serious: Yes (Other)
  Sender: FDA-Public Use
  Company Number: US-SAOL THERAPEUTICS-2017SAO01011

PATIENT
  Age: 47 Year
  Sex: Female

DRUGS (18)
  1. DILAUDID [Suspect]
     Active Substance: HYDROMORPHONE HYDROCHLORIDE
     Dosage: 0.20024 MG, \DAY
     Route: 037
     Dates: start: 20160708, end: 20160907
  2. CLONIDINE. [Suspect]
     Active Substance: CLONIDINE
     Dosage: 165.20 ?G, \DAY
     Route: 037
     Dates: start: 20160503, end: 20160907
  3. COMPOUNDED BACLOFEN [Suspect]
     Active Substance: BACLOFEN
     Dosage: 441.54 ?G, \DAY
     Route: 037
     Dates: start: 20160708, end: 20160907
  4. COMPOUNDED BACLOFEN [Suspect]
     Active Substance: BACLOFEN
     Dosage: 484.95 ?G, \DAY
     Route: 037
     Dates: start: 20160907, end: 20160916
  5. DILAUDID [Suspect]
     Active Substance: HYDROMORPHONE HYDROCHLORIDE
     Dosage: DECREASED BY 9%
     Route: 037
  6. CLONIDINE. [Suspect]
     Active Substance: CLONIDINE
     Dosage: 181.44 ?G, \DAY
     Route: 037
     Dates: start: 20160907, end: 20160916
  7. COMPOUNDED FENTANYL [Suspect]
     Active Substance: FENTANYL
     Dosage: DECREASED BY 9%
     Route: 037
  8. BUPIVACAINE. [Suspect]
     Active Substance: BUPIVACAINE
     Dosage: 8.797 MG, \DAY
     Route: 037
     Dates: start: 20160907, end: 20160916
  9. COMPOUNDED BACLOFEN [Suspect]
     Active Substance: BACLOFEN
     Dosage: 440.54 ?G, \DAY
     Route: 037
     Dates: start: 20160503, end: 20160708
  10. COMPOUNDED FENTANYL [Suspect]
     Active Substance: FENTANYL
     Dosage: 601.7 ?G, \DAY
     Route: 037
     Dates: start: 20160708, end: 20160907
  11. COMPOUNDED FENTANYL [Suspect]
     Active Substance: FENTANYL
     Dosage: 660.7 ?G, \DAY
     Route: 037
     Dates: start: 20160907, end: 20160916
  12. FENTANYL. [Suspect]
     Active Substance: FENTANYL
     Dosage: 600.7 ?G, \DAY
     Route: 037
     Dates: start: 20160503
  13. DILAUDID [Suspect]
     Active Substance: HYDROMORPHONE HYDROCHLORIDE
     Dosage: 0.21993 MG, \DAY
     Route: 037
     Dates: start: 20160907, end: 20160916
  14. BUPIVACAINE. [Suspect]
     Active Substance: BUPIVACAINE
     Dosage: DECREASED BY 9%
     Route: 037
  15. COMPOUNDED BACLOFEN [Suspect]
     Active Substance: BACLOFEN
     Dosage: DECREASED BY 9%
     Route: 037
  16. BUPIVACAINE. [Suspect]
     Active Substance: BUPIVACAINE
     Dosage: 8.010 MG, \DAY
     Route: 037
     Dates: start: 20160503, end: 20160907
  17. CLONIDINE. [Suspect]
     Active Substance: CLONIDINE
     Dosage: DECREASED BY 9%
     Route: 037
  18. UNSPECIFIED MEDICTION [Suspect]
     Active Substance: UNSPECIFIED INGREDIENT

REACTIONS (5)
  - Device malfunction [Recovered/Resolved]
  - Hypotension [Recovered/Resolved]
  - Asthenia [Unknown]
  - Hypertension [Recovered/Resolved]
  - Fall [Recovered/Resolved]

NARRATIVE: CASE EVENT DATE: 20160805
